FAERS Safety Report 20054519 (Version 1)
Quarter: 2021Q4

REPORT INFORMATION
  Report Type: Spontaneous
  Country: US (occurrence: None)
  Receive Date: 20211110
  Receipt Date: 20211110
  Transmission Date: 20220303
  Serious: No
  Sender: FDA-Public Use
  Company Number: None

PATIENT
  Age: 77 Year
  Sex: Female
  Weight: 57.8 kg

DRUGS (10)
  1. CASIRIVIMAB\IMDEVIMAB [Suspect]
     Active Substance: CASIRIVIMAB\IMDEVIMAB
     Indication: COVID-19
     Dosage: OTHER FREQUENCY : ONCE;?
     Route: 042
  2. CETIRIZINE [Concomitant]
     Active Substance: CETIRIZINE HYDROCHLORIDE
  3. VITAMIN B12 [Concomitant]
     Active Substance: CYANOCOBALAMIN
  4. ESTRADIOL [Concomitant]
     Active Substance: ESTRADIOL
  5. IRON [Concomitant]
     Active Substance: IRON
  6. MEMANTINE [Concomitant]
     Active Substance: MEMANTINE
  7. VITAMINS [Concomitant]
     Active Substance: VITAMINS
  8. PANTOPRAZOLE [Concomitant]
     Active Substance: PANTOPRAZOLE
  9. PROGESTERONE [Concomitant]
     Active Substance: PROGESTERONE
  10. VALACYCLOVIR [Concomitant]
     Active Substance: VALACYCLOVIR HYDROCHLORIDE

REACTIONS (5)
  - Dyspnoea [None]
  - Dizziness [None]
  - Chills [None]
  - Encephalopathy [None]
  - Retrograde amnesia [None]
